FAERS Safety Report 9523830 (Version 1)
Quarter: 2013Q3

REPORT INFORMATION
  Report Type: Spontaneous
  Country: US (occurrence: None)
  Receive Date: 20130912
  Receipt Date: 20130912
  Transmission Date: 20140515
  Serious: No
  Sender: FDA-Public Use
  Company Number: None

PATIENT
  Age: 66 Year
  Sex: Female

DRUGS (1)
  1. PROLIA [Suspect]
     Indication: OSTEOARTHRITIS
     Dosage: Q6MONTHS
     Route: 058
     Dates: start: 20130319, end: 20130910

REACTIONS (2)
  - Candida infection [None]
  - Malaise [None]
